FAERS Safety Report 7304394-9 (Version None)
Quarter: 2011Q1

REPORT INFORMATION
  Report Type: 
  Country: None (occurrence: None)
  Receive Date: 20110221
  Receipt Date: 20110209
  Transmission Date: 20110831
  Serious: Yes (Hospitalization)
  Sender: FDA-Public Use
  Company Number: US-ELI_LILLY_AND_COMPANY-US201102002861

PATIENT
  Sex: Female

DRUGS (12)
  1. FORTEO [Suspect]
     Dosage: 20 UG, DAILY (1/D)
  2. PRILOSEC [Concomitant]
  3. TRAMADOL HCL [Concomitant]
  4. AVELOX [Concomitant]
  5. MUCINEX DM [Concomitant]
  6. METOPROLOL [Concomitant]
  7. AMOXIKLAV [Concomitant]
  8. ALBUTEROL [Concomitant]
  9. FORTEO [Suspect]
     Indication: OSTEOPOROSIS
     Dosage: 20 UG, DAILY (1/D)
     Dates: start: 20090801
  10. SPIRIVA [Concomitant]
  11. PREDNISONE [Concomitant]
     Dosage: 5 MG, UNK
  12. CALCIUM [Concomitant]

REACTIONS (4)
  - DIARRHOEA [None]
  - VOMITING [None]
  - GASTRIC DISORDER [None]
  - RESPIRATORY DISORDER [None]
